FAERS Safety Report 8158673-6 (Version None)
Quarter: 2012Q1

REPORT INFORMATION
  Report Type: 
  Country: None (occurrence: None)
  Receive Date: 20120217
  Receipt Date: 20120213
  Transmission Date: 20120608
  Serious: Yes (Death)
  Sender: FDA-Public Use
  Company Number: 2011SP010733

PATIENT
  Age: 49 Year
  Sex: Male
  Weight: 72 kg

DRUGS (18)
  1. TEMODAL [Suspect]
     Indication: ANAPLASTIC ASTROCYTOMA
     Dosage: SEE IMAGE
     Route: 048
     Dates: start: 20071006, end: 20071009
  2. TEMODAL [Suspect]
     Indication: ANAPLASTIC ASTROCYTOMA
     Dosage: SEE IMAGE
     Route: 048
     Dates: start: 20071102, end: 20071106
  3. TEMODAL [Suspect]
     Indication: ANAPLASTIC ASTROCYTOMA
     Dosage: SEE IMAGE
     Route: 048
     Dates: start: 20061127, end: 20061201
  4. TEMODAL [Suspect]
     Indication: ANAPLASTIC ASTROCYTOMA
     Dosage: SEE IMAGE
     Route: 048
     Dates: start: 20070226, end: 20070302
  5. TEMODAL [Suspect]
     Indication: ANAPLASTIC ASTROCYTOMA
     Dosage: SEE IMAGE
     Route: 048
     Dates: start: 20070409, end: 20070413
  6. TEMODAL [Suspect]
     Indication: ANAPLASTIC ASTROCYTOMA
     Dosage: SEE IMAGE
     Route: 048
     Dates: start: 20070625, end: 20070629
  7. TEMODAL [Suspect]
     Indication: ANAPLASTIC ASTROCYTOMA
     Dosage: SEE IMAGE
     Route: 048
     Dates: start: 20070827, end: 20070831
  8. TEMODAL [Suspect]
     Indication: ANAPLASTIC ASTROCYTOMA
     Dosage: SEE IMAGE
     Route: 048
     Dates: start: 20061225, end: 20061229
  9. TEMODAL [Suspect]
     Indication: ANAPLASTIC ASTROCYTOMA
     Dosage: SEE IMAGE
     Route: 048
     Dates: start: 20070122, end: 20070126
  10. TEMODAL [Suspect]
     Indication: ANAPLASTIC ASTROCYTOMA
     Dosage: SEE IMAGE
     Route: 048
     Dates: start: 20070521, end: 20070525
  11. TEMODAL [Suspect]
     Indication: ANAPLASTIC ASTROCYTOMA
     Dosage: SEE IMAGE
     Route: 048
     Dates: start: 20070723, end: 20070727
  12. TEMODAL [Suspect]
     Indication: ANAPLASTIC ASTROCYTOMA
     Dosage: SEE IMAGE
     Route: 048
     Dates: start: 20061030, end: 20061103
  13. GLUCOBAY [Concomitant]
  14. DEPAKENE [Concomitant]
  15. MYSTAN [Concomitant]
  16. KYTRIL [Concomitant]
  17. COTRIM [Concomitant]
  18. NOVORAPID [Concomitant]

REACTIONS (2)
  - NEOPLASM RECURRENCE [None]
  - ANAPLASTIC ASTROCYTOMA [None]
